FAERS Safety Report 13669347 (Version 1)
Quarter: 2017Q2

REPORT INFORMATION
  Report Type: Spontaneous
  Country: ES (occurrence: ES)
  Receive Date: 20170620
  Receipt Date: 20170620
  Transmission Date: 20170830
  Serious: Yes (Other)
  Sender: FDA-Public Use
  Company Number: ES-MYLANLABS-2017M1036328

PATIENT

DRUGS (1)
  1. BUPRENORPHINE. [Suspect]
     Active Substance: BUPRENORPHINE
     Indication: BACK PAIN
     Dosage: 30 MG (52.5 MICROG/HOUR) EVERY 72 HOURS FOR 8 MONTHS
     Route: 062

REACTIONS (1)
  - Oesophageal obstruction [Recovering/Resolving]
